FAERS Safety Report 6921433-5 (Version None)
Quarter: 2010Q3

REPORT INFORMATION
  Report Type: 
  Country: None (occurrence: None)
  Receive Date: 20100812
  Receipt Date: 20090710
  Transmission Date: 20110219
  Serious: No
  Sender: FDA-Public Use
  Company Number: A0796321A

PATIENT
  Age: 84 Year
  Sex: Male

DRUGS (2)
  1. TAGAMET HB 200 [Suspect]
     Route: 048
     Dates: start: 20090706, end: 20090709
  2. XYZAL [Concomitant]

REACTIONS (3)
  - CONDITION AGGRAVATED [None]
  - ERUCTATION [None]
  - URTICARIA [None]
